FAERS Safety Report 16470562 (Version 1)
Quarter: 2019Q2

REPORT INFORMATION
  Report Type: Report from Study
  Country: US (occurrence: US)
  Receive Date: 20190624
  Receipt Date: 20190624
  Transmission Date: 20190711
  Serious: Yes (Death, Hospitalization)
  Sender: FDA-Public Use
  Company Number: US-ACTELION-A-US2018-173387

PATIENT
  Age: 49 Year
  Sex: Female
  Weight: 58.96 kg

DRUGS (6)
  1. LETAIRIS [Concomitant]
     Active Substance: AMBRISENTAN
  2. VELETRI [Suspect]
     Active Substance: EPOPROSTENOL
     Indication: PULMONARY HYPERTENSION
     Dosage: 5 NG/KG, PER MIN
     Route: 042
  3. VELETRI [Suspect]
     Active Substance: EPOPROSTENOL
     Dosage: 16.25 NG/KG, PER MIN
     Route: 042
  4. VELETRI [Suspect]
     Active Substance: EPOPROSTENOL
     Dosage: 6.5 NG/KG, PER MIN
     Route: 042
  5. VELETRI [Suspect]
     Active Substance: EPOPROSTENOL
     Dosage: 9 NG/KG, PER MIN
     Route: 042
  6. ADCIRCA [Concomitant]
     Active Substance: TADALAFIL

REACTIONS (20)
  - Death [Fatal]
  - Pain in jaw [Unknown]
  - Muscle spasms [Unknown]
  - Peripheral swelling [Unknown]
  - Rash [Unknown]
  - Pruritus [Unknown]
  - Pain in extremity [Unknown]
  - Arthralgia [Unknown]
  - Dyspepsia [Not Recovered/Not Resolved]
  - Gastric dilatation [Unknown]
  - Feeding disorder [Unknown]
  - Abdominal pain [Not Recovered/Not Resolved]
  - Dysphagia [Unknown]
  - Dizziness [Recovering/Resolving]
  - Diarrhoea [Unknown]
  - Abdominal pain upper [Unknown]
  - Feeling hot [Recovering/Resolving]
  - Pain [Unknown]
  - Abdominal distension [Unknown]
  - Migraine [Unknown]

NARRATIVE: CASE EVENT DATE: 20180602
